FAERS Safety Report 8082309-6 (Version None)
Quarter: 2012Q1

REPORT INFORMATION
  Report Type: 
  Country: None (occurrence: None)
  Receive Date: 20120127
  Receipt Date: 20110216
  Transmission Date: 20120608
  Serious: No
  Sender: FDA-Public Use
  Company Number: US-ABBOTT-11P-163-0705671-00

PATIENT
  Sex: Female

DRUGS (14)
  1. METOPROLOL TARTRATE [Concomitant]
     Indication: HYPERTENSION
  2. FLONASE [Concomitant]
     Indication: SINUS DISORDER
     Dosage: AS NEEDED
     Route: 045
  3. SPIRIVA [Concomitant]
     Indication: CHRONIC OBSTRUCTIVE PULMONARY DISEASE
  4. OMEPRAZOLE [Concomitant]
     Indication: GASTROOESOPHAGEAL REFLUX DISEASE
  5. EFFEXOR XR [Concomitant]
     Indication: DEPRESSION
  6. LIPITOR [Concomitant]
     Indication: BLOOD CHOLESTEROL INCREASED
  7. TRAZODONE HCL [Concomitant]
     Indication: INSOMNIA
     Dosage: AT BEDTIME
  8. OXYBUTYNIN [Concomitant]
     Indication: INCONTINENCE
  9. HYDROCODONE BITARTRATE [Concomitant]
     Indication: FIBROMYALGIA
     Dosage: 7.5MG X3 DAILY
  10. ADVAIR DISKUS 100/50 [Concomitant]
     Indication: CHRONIC OBSTRUCTIVE PULMONARY DISEASE
     Dosage: 250/50; TWICE A DAY
  11. CLOBETAZOLE OINT [Concomitant]
     Indication: PSORIASIS
     Dosage: AS NEEDED
  12. HUMIRA [Suspect]
     Indication: PSORIASIS
     Dates: start: 20101216
  13. XOPENEX [Concomitant]
     Indication: CHRONIC OBSTRUCTIVE PULMONARY DISEASE
     Dosage: MDI
     Route: 055
  14. LASIX [Concomitant]
     Indication: SWELLING

REACTIONS (3)
  - RASH [None]
  - FATIGUE [None]
  - PSORIASIS [None]
